FAERS Safety Report 8345107-1 (Version None)
Quarter: 2012Q2

REPORT INFORMATION
  Report Type: 
  Country: None (occurrence: None)
  Receive Date: 20120504
  Receipt Date: 20120424
  Transmission Date: 20120825
  Serious: Yes (Other)
  Sender: FDA-Public Use
  Company Number: US-2012-10480

PATIENT
  Age: 15 Year
  Sex: Male

DRUGS (6)
  1. TACROLIMUS [Concomitant]
  2. FLUDARABINE PHOSPHATE [Suspect]
     Dosage: 180 MG/M2
  3. LEUKINE [Concomitant]
  4. BUSULFAN [Suspect]
     Dosage: 12.8 MG/KG
  5. FILGRASTIM (FILGRASTIM) [Concomitant]
  6. ALEMTUZUMAB (ALEMTUZUMAB) [Suspect]
     Dosage: 54 MG/M2

REACTIONS (4)
  - POST TRANSPLANT LYMPHOPROLIFERATIVE DISORDER [None]
  - WHITE BLOOD CELL COUNT DECREASED [None]
  - PLATELET COUNT DECREASED [None]
  - PYREXIA [None]
